FAERS Safety Report 10263243 (Version 2)
Quarter: 2014Q2

REPORT INFORMATION
  Report Type: Report from Study
  Country: US (occurrence: US)
  Receive Date: 20140626
  Receipt Date: 20140626
  Transmission Date: 20141212
  Serious: Yes (Other)
  Sender: FDA-Public Use
  Company Number: US-MYLANLABS-2014S1010005

PATIENT
  Age: 18 Year
  Sex: Female
  Weight: 92.99 kg

DRUGS (7)
  1. CLOZAPINE TABLETS [Suspect]
     Indication: PSYCHOTIC DISORDER
     Route: 048
     Dates: start: 201308, end: 20140415
  2. ZYPREXA [Concomitant]
  3. LITHIUM CARBONATE EXTENDED-RELEASE TABLETS USP [Concomitant]
  4. CALCIUM [Concomitant]
  5. COLACE [Concomitant]
  6. MIRALAX /00754501/ [Concomitant]
  7. DEPO-PROVERA [Concomitant]

REACTIONS (1)
  - Granulocytopenia [Not Recovered/Not Resolved]
